FAERS Safety Report 10460403 (Version 1)
Quarter: 2014Q3

REPORT INFORMATION
  Report Type: Spontaneous
  Country: US (occurrence: US)
  Receive Date: 20140917
  Receipt Date: 20140917
  Transmission Date: 20150326
  Serious: No
  Sender: FDA-Public Use
  Company Number: US-ASTRAZENECA-2014SE67486

PATIENT
  Age: 55 Year
  Sex: Female
  Weight: 67.1 kg

DRUGS (12)
  1. METOPROLOL SUCCINATE. [Suspect]
     Active Substance: METOPROLOL SUCCINATE
     Indication: BLOOD PRESSURE
     Route: 048
     Dates: start: 2011
  2. PRILOSEC [Suspect]
     Active Substance: OMEPRAZOLE MAGNESIUM
     Indication: GASTROOESOPHAGEAL REFLUX DISEASE
     Route: 048
     Dates: start: 2000
  3. CARDIZEM [Suspect]
     Active Substance: DILTIAZEM HYDROCHLORIDE
     Route: 065
     Dates: start: 2014
  4. MAGNESIUM [Concomitant]
     Active Substance: MAGNESIUM
     Dates: start: 2014
  5. METOPROLOL SUCCINATE. [Suspect]
     Active Substance: METOPROLOL SUCCINATE
     Indication: BLOOD PRESSURE
     Dosage: ONCE DAILY, 3-4 MONTH AS REQUIRED
     Route: 048
  6. CARDIZEM [Suspect]
     Active Substance: DILTIAZEM HYDROCHLORIDE
     Route: 065
     Dates: start: 2011, end: 2012
  7. ZIAC WITH HYDROCHLOROTHIAZIDE [Concomitant]
     Dosage: 5/6.25 MG, DAILY
     Route: 048
  8. MULTIVITAMIN [Concomitant]
     Active Substance: VITAMINS
  9. METOPROLOL SUCCINATE. [Suspect]
     Active Substance: METOPROLOL SUCCINATE
     Indication: BLOOD PRESSURE
     Route: 048
     Dates: start: 2013
  10. PRILOSEC [Suspect]
     Active Substance: OMEPRAZOLE MAGNESIUM
     Indication: GASTROOESOPHAGEAL REFLUX DISEASE
     Route: 048
  11. MAGNESIUM [Concomitant]
     Active Substance: MAGNESIUM
  12. MAGNESIUM [Concomitant]
     Active Substance: MAGNESIUM

REACTIONS (17)
  - Oesophageal spasm [Unknown]
  - Osteopenia [Unknown]
  - Chest discomfort [Unknown]
  - Dizziness [Unknown]
  - Blood calcium decreased [Unknown]
  - Throat irritation [Unknown]
  - Osteoporosis [Unknown]
  - Pain in extremity [Unknown]
  - Off label use [Not Recovered/Not Resolved]
  - Asthenia [Unknown]
  - Vasoconstriction [Unknown]
  - Arterial spasm [Unknown]
  - Arrhythmia [Not Recovered/Not Resolved]
  - Gastrooesophageal reflux disease [Unknown]
  - Insomnia [Unknown]
  - Muscle spasms [Unknown]
  - Stress [Unknown]

NARRATIVE: CASE EVENT DATE: 2011
